FAERS Safety Report 6541067-4 (Version None)
Quarter: 2010Q1

REPORT INFORMATION
  Report Type: 
  Country: None (occurrence: None)
  Receive Date: 20100118
  Receipt Date: 20100112
  Transmission Date: 20100710
  Serious: Yes (Other)
  Sender: FDA-Public Use
  Company Number: CA-JNJCH-2010000885

PATIENT
  Sex: Female

DRUGS (1)
  1. LISTERINE WHITENING DISOLVING STRIPS [Suspect]
     Indication: DRUG USE FOR UNKNOWN INDICATION
     Dosage: TEXT:ONCE
     Route: 048
     Dates: start: 20100112, end: 20100112

REACTIONS (3)
  - APPLICATION SITE IRRITATION [None]
  - APPLICATION SITE PAIN [None]
  - ORAL MUCOSAL EXFOLIATION [None]
